FAERS Safety Report 6766741-6 (Version None)
Quarter: 2010Q2

REPORT INFORMATION
  Report Type: 
  Country: None (occurrence: None)
  Receive Date: 20100609
  Receipt Date: 20100528
  Transmission Date: 20101027
  Serious: Yes (Other)
  Sender: FDA-Public Use
  Company Number: 167-20484-09071439

PATIENT
  Age: 23 Year
  Sex: Female
  Weight: 65 kg

DRUGS (9)
  1. INNOHEP [Suspect]
     Indication: DEEP VEIN THROMBOSIS
     Dosage: SEE IMAGE
     Route: 058
     Dates: start: 20060310, end: 20060312
  2. INNOHEP [Suspect]
     Indication: DEEP VEIN THROMBOSIS
     Dosage: SEE IMAGE
     Route: 058
     Dates: start: 20060313, end: 20060320
  3. INNOHEP [Suspect]
     Indication: DEEP VEIN THROMBOSIS
     Dosage: SEE IMAGE
     Route: 058
     Dates: start: 20060321, end: 20060403
  4. INNOHEP [Suspect]
     Indication: DEEP VEIN THROMBOSIS
     Dosage: SEE IMAGE
     Route: 058
     Dates: start: 20060404, end: 20060522
  5. INNOHEP [Suspect]
     Indication: DEEP VEIN THROMBOSIS
     Dosage: SEE IMAGE
     Route: 058
     Dates: start: 20060523, end: 20060814
  6. ACETAMINOPHEN [Concomitant]
  7. SYNTOCINON [Concomitant]
  8. DIAMORPHINE (DIAMORPHINE) [Concomitant]
  9. PROCHLORPERAZINE MALEATE [Concomitant]

REACTIONS (4)
  - DRUG EXPOSURE DURING PREGNANCY [None]
  - POSTPARTUM HAEMORRHAGE [None]
  - UTERINE ATONY [None]
  - VAGINAL LACERATION [None]
